FAERS Safety Report 22382334 (Version 1)
Quarter: 2023Q2

REPORT INFORMATION
  Report Type: Spontaneous
  Country: NZ (occurrence: NZ)
  Receive Date: 20230530
  Receipt Date: 20230530
  Transmission Date: 20230722
  Serious: No
  Sender: FDA-Public Use
  Company Number: NZ-GLAXOSMITHKLINE-NZCH2023APC024265

PATIENT
  Age: 94 Year
  Sex: Female

DRUGS (1)
  1. LAMISIL [Suspect]
     Active Substance: TERBINAFINE HYDROCHLORIDE
     Indication: Fungal infection
     Dosage: UNK
     Route: 065
     Dates: start: 20230518

REACTIONS (1)
  - Product use in unapproved indication [Unknown]
